FAERS Safety Report 10379981 (Version 2)
Quarter: 2014Q3

REPORT INFORMATION
  Report Type: Spontaneous
  Country: FR (occurrence: FR)
  Receive Date: 20140813
  Receipt Date: 20140818
  Transmission Date: 20150326
  Serious: Yes (Hospitalization)
  Sender: FDA-Public Use
  Company Number: FR-ROCHE-1448434

PATIENT
  Age: 75 Year
  Sex: Male

DRUGS (1)
  1. ROACTEMRA [Suspect]
     Active Substance: TOCILIZUMAB
     Indication: CHRONIC MYELOMONOCYTIC LEUKAEMIA
     Route: 065
     Dates: start: 20140724

REACTIONS (2)
  - Thrombocytopenia [Recovering/Resolving]
  - Hypofibrinogenaemia [Unknown]

NARRATIVE: CASE EVENT DATE: 20140729
